FAERS Safety Report 19406009 (Version 2)
Quarter: 2021Q2

REPORT INFORMATION
  Report Type: Spontaneous
  Country: US (occurrence: US)
  Receive Date: 20210611
  Receipt Date: 20210615
  Transmission Date: 20210717
  Serious: Yes (Other)
  Sender: FDA-Public Use
  Company Number: US-SA-2021SA184160

PATIENT
  Age: 61 Year
  Sex: Male

DRUGS (2)
  1. TOUJEO [Suspect]
     Active Substance: INSULIN GLARGINE
     Indication: TYPE 1 DIABETES MELLITUS
     Dosage: 32?34 UNITS, QD
     Route: 065
  2. TOUJEO [Suspect]
     Active Substance: INSULIN GLARGINE
     Dosage: RECENTLY 36 IU,QD
     Route: 065

REACTIONS (6)
  - Fear [Unknown]
  - Drug ineffective [Unknown]
  - Product dose omission issue [Unknown]
  - Feeling abnormal [Unknown]
  - Diabetes mellitus inadequate control [Unknown]
  - Screaming [Not Recovered/Not Resolved]
